FAERS Safety Report 7371737-X (Version None)
Quarter: 2011Q1

REPORT INFORMATION
  Report Type: 
  Country: None (occurrence: None)
  Receive Date: 20110324
  Receipt Date: 20110313
  Transmission Date: 20110831
  Serious: Yes (Other)
  Sender: FDA-Public Use
  Company Number: US-ENDO PHARMACEUTICALS INC.-OPIR20110009

PATIENT
  Age: 32 Year
  Sex: Male

DRUGS (1)
  1. OPANA [Suspect]
     Indication: DRUG ABUSE
     Dosage: UNK
     Route: 048

REACTIONS (2)
  - DRUG DIVERSION [None]
  - DRUG ABUSE [None]
